FAERS Safety Report 9856661 (Version 4)
Quarter: 2014Q2

REPORT INFORMATION
  Report Type: Spontaneous
  Country: GB (occurrence: None)
  Receive Date: 20140127
  Receipt Date: 20140512
  Transmission Date: 20141212
  Serious: Yes (Hospitalization)
  Sender: FDA-Public Use
  Company Number: GB2014K0110SPO

PATIENT
  Age: 72 Year
  Sex: Female

DRUGS (15)
  1. LANSOPRAZOLE GENERIC [Suspect]
     Indication: PRODUCT USED FOR UNKNOWN INDICATION
     Dosage: 30 MG, 1X PER DAY, ORAL
     Route: 048
     Dates: start: 20131101, end: 20140110
  2. ALLOPURINOL [Suspect]
     Indication: GOUT
     Dosage: 100 MG, 1X PER DAY, ORAL
     Route: 048
     Dates: start: 20131101, end: 20140110
  3. ARANESP (DARBEPOETIN ALFA) [Suspect]
     Indication: NEPHROGENIC ANAEMIA
     Dosage: 100 UG, PER WEEK; SUBCUTANEOUS
     Route: 058
     Dates: start: 20131014
  4. ARANESP (DARBEPOETIN ALFA) [Suspect]
     Indication: NEPHROGENIC ANAEMIA
     Dosage: 100 UG, PER WEEK; SUBCUTANEOUS
     Route: 058
     Dates: start: 20131014
  5. AMINOPHYLLINE (AMINOPHYLLINE) [Concomitant]
  6. ASPIRIN (ASPIRIN) [Concomitant]
  7. DOSULEPIN (DOSULEPIN) [Concomitant]
  8. FUROSEMIDE (FRUSEMIDE) [Concomitant]
  9. INDAPAMIDE (INDAPAMIDE) [Concomitant]
  10. NOVOMIX (INSULIN ASPART) [Concomitant]
  11. RAMIPRIL(RAMIPRIL) [Concomitant]
  12. SALBUTAMOL (SALBUTAMOL) [Concomitant]
  13. SERETIDE (FLUTICASONE PROPIONATE MICRONISED, SALMETEROL XINAFOATE MICRONISED) [Concomitant]
  14. SIMVASTATIN (SIMVASTATIN) [Concomitant]
  15. TIOTROPIUM (TIOTROPIUM BROMIDE) [Concomitant]

REACTIONS (11)
  - Rash erythematous [None]
  - Drug eruption [None]
  - Eczema [None]
  - Dermatitis exfoliative [None]
  - Lymphocytic infiltration [None]
  - Parakeratosis [None]
  - Skin exfoliation [None]
  - Wheezing [None]
  - Pruritus generalised [None]
  - Rash erythematous [None]
  - Skin exfoliation [None]
